FAERS Safety Report 4732230-3 (Version None)
Quarter: 2005Q3

REPORT INFORMATION
  Report Type: 
  Country: None (occurrence: None)
  Receive Date: 20050726
  Receipt Date: 20040816
  Transmission Date: 20060218
  Serious: Yes (Life-Threatening)
  Sender: FDA-Public Use
  Company Number: 04FRA0193

PATIENT
  Age: 74 Year
  Sex: Male

DRUGS (6)
  1. AGGRASTAT [Suspect]
     Indication: ACUTE CORONARY SYNDROME
     Dates: start: 20040127, end: 20040127
  2. ENOXAPARIN SODIUM [Suspect]
     Dosage: 40 MG/DAILY, SUBCUTANEOUS
     Route: 058
     Dates: start: 20040125, end: 20040126
  3. CLOPIDOGREL BISULFATE [Suspect]
     Dosage: 1 DOSE/DAILY
     Dates: start: 20040127
  4. ASPIRIN LYSINE(ACETYLSALICYLIC LYSINE) [Concomitant]
  5. RAMIPRIL [Concomitant]
  6. VERAPAMIL HYDROCHLORIDE [Concomitant]

REACTIONS (1)
  - THROMBOCYTOPENIA [None]
